FAERS Safety Report 8574836-X (Version None)
Quarter: 2012Q3

REPORT INFORMATION
  Report Type: 
  Country: None (occurrence: None)
  Receive Date: 20120807
  Receipt Date: 20120802
  Transmission Date: 20120928
  Serious: Yes (Other)
  Sender: FDA-Public Use
  Company Number: US-AMGEN-USASP2011032971

PATIENT
  Age: 48 Year
  Sex: Female

DRUGS (1)
  1. ENBREL [Suspect]
     Indication: RHEUMATOID ARTHRITIS
     Dosage: 50 MG, QWK
     Dates: start: 20110501, end: 20110628

REACTIONS (9)
  - INJECTION SITE REACTION [None]
  - THROAT IRRITATION [None]
  - INJECTION SITE PRURITUS [None]
  - INJECTION SITE INDURATION [None]
  - INJECTION SITE PAIN [None]
  - DYSPNOEA [None]
  - INJECTION SITE URTICARIA [None]
  - SINUSITIS [None]
  - INJECTION SITE ERYTHEMA [None]
